FAERS Safety Report 25251320 (Version 1)
Quarter: 2025Q2

REPORT INFORMATION
  Report Type: Spontaneous
  Country: TR (occurrence: TR)
  Receive Date: 20250429
  Receipt Date: 20250429
  Transmission Date: 20250717
  Serious: Yes (Hospitalization)
  Sender: SANDOZ
  Company Number: TR-MLMSERVICE-20250409-PI474791-00218-1

PATIENT
  Age: 74 Year
  Sex: Female

DRUGS (1)
  1. METHOTREXATE [Suspect]
     Active Substance: METHOTREXATE
     Indication: Rheumatoid arthritis
     Dosage: 2 DF, QD
     Route: 065

REACTIONS (5)
  - Oropharyngeal candidiasis [Unknown]
  - Febrile neutropenia [Recovered/Resolved]
  - Toxicity to various agents [Unknown]
  - Pancytopenia [Recovered/Resolved]
  - Intentional product misuse [Unknown]
